FAERS Safety Report 18879508 (Version 1)
Quarter: 2021Q1

REPORT INFORMATION
  Report Type: Spontaneous
  Country: US (occurrence: US)
  Receive Date: 20210211
  Receipt Date: 20210211
  Transmission Date: 20210420
  Serious: Yes (Other)
  Sender: FDA-Public Use
  Company Number: None

PATIENT
  Age: 15 Year
  Sex: Male
  Weight: 93 kg

DRUGS (6)
  1. BAMLANIVIMAB. [Suspect]
     Active Substance: BAMLANIVIMAB
     Indication: COVID-19
     Dosage: ?          OTHER FREQUENCY:ONCE;?
     Route: 040
     Dates: start: 20210204, end: 20210204
  2. ASPIRIN 81 MG [Concomitant]
     Active Substance: ASPIRIN
  3. MAGNESIUM OXIDE. [Concomitant]
     Active Substance: MAGNESIUM OXIDE
  4. FAMOTIDINE. [Concomitant]
     Active Substance: FAMOTIDINE
  5. MYCOPHENOLATE 1000 MG BID [Concomitant]
  6. TACROLIMUS. [Concomitant]
     Active Substance: TACROLIMUS

REACTIONS (6)
  - Productive cough [None]
  - Diarrhoea [None]
  - Infusion related reaction [None]
  - Hot flush [None]
  - Throat irritation [None]
  - Pyrexia [None]

NARRATIVE: CASE EVENT DATE: 20210204
